FAERS Safety Report 4951444-0 (Version None)
Quarter: 2006Q1

REPORT INFORMATION
  Report Type: 
  Country: None (occurrence: None)
  Receive Date: 20060317
  Receipt Date: 20060308
  Transmission Date: 20060701
  Serious: Yes (Other)
  Sender: FDA-Public Use
  Company Number: 2006034345

PATIENT
  Age: 53 Year
  Sex: Female
  Weight: 58.9676 kg

DRUGS (6)
  1. LYRICA [Suspect]
     Indication: NEUROPATHY
     Dosage: 150 MG (75 MG, 2 IN 1 D)
     Dates: start: 20050101
  2. BENADRYL [Suspect]
     Indication: EYE SWELLING
     Dates: start: 20060101, end: 20060101
  3. BENADRYL [Suspect]
     Indication: HYPERSENSITIVITY
     Dates: start: 20060101, end: 20060101
  4. ERYTHROMYCIN [Suspect]
     Indication: EYE SWELLING
     Dosage: 100 MG (500 MG, 2 IN 1 D)
     Dates: start: 20060101, end: 20060101
  5. PROZAC [Concomitant]
  6. ALLEGRA [Concomitant]

REACTIONS (12)
  - ALLERGY TO ANIMAL [None]
  - DRUG EFFECT DECREASED [None]
  - DRUG INEFFECTIVE [None]
  - DRY EYE [None]
  - EYE PAIN [None]
  - EYE SWELLING [None]
  - HEADACHE [None]
  - MASS [None]
  - MULTIPLE SCLEROSIS [None]
  - NERVOUS SYSTEM DISORDER [None]
  - NUCLEAR MAGNETIC RESONANCE IMAGING BRAIN ABNORMAL [None]
  - VISION BLURRED [None]
